FAERS Safety Report 10221344 (Version 1)
Quarter: 2014Q2

REPORT INFORMATION
  Report Type: Spontaneous
  Country: US (occurrence: US)
  Receive Date: 20140606
  Receipt Date: 20140606
  Transmission Date: 20141212
  Serious: No
  Sender: FDA-Public Use
  Company Number: US-GLAXOSMITHKLINE-A1072830A

PATIENT
  Age: 69 Year
  Sex: Female

DRUGS (14)
  1. BREO ELLIPTA [Suspect]
     Indication: EMPHYSEMA
     Dosage: 1PUFF PER DAY
     Route: 055
     Dates: start: 20140407
  2. TUDORZA [Concomitant]
  3. DALIRESP [Concomitant]
  4. FUROSEMIDE [Concomitant]
  5. IBUPROFEN [Concomitant]
  6. OMEPRAZOLE [Concomitant]
  7. KLOR-CON [Concomitant]
  8. SIMVASTATIN [Concomitant]
  9. MONTELUKAST [Concomitant]
  10. VENTOLIN [Concomitant]
  11. NASONEX [Concomitant]
  12. ASTEPRO [Concomitant]
  13. SALINE SOLUTION [Concomitant]
  14. IPRATROPIUM [Concomitant]
     Route: 045

REACTIONS (3)
  - Drug ineffective [Unknown]
  - Abdominal distension [Unknown]
  - Constipation [Unknown]
